FAERS Safety Report 7035496-2 (Version None)
Quarter: 2010Q4

REPORT INFORMATION
  Report Type: 
  Country: None (occurrence: None)
  Receive Date: 20101008
  Receipt Date: 20100930
  Transmission Date: 20110411
  Serious: Yes (Life-Threatening, Hospitalization)
  Sender: FDA-Public Use
  Company Number: Z0005904A

PATIENT
  Sex: Male

DRUGS (9)
  1. OFATUMUMAB [Suspect]
     Indication: DIFFUSE LARGE B-CELL LYMPHOMA RECURRENT
     Dosage: 1000MG CYCLIC
     Route: 042
     Dates: start: 20100920
  2. DEXAMETHASONE [Suspect]
     Indication: DIFFUSE LARGE B-CELL LYMPHOMA RECURRENT
     Dosage: 40MG EVERY 3 WEEKS
     Route: 048
     Dates: start: 20100920
  3. CISPLATIN [Suspect]
     Indication: DIFFUSE LARGE B-CELL LYMPHOMA RECURRENT
     Dosage: 100MGM2 EVERY 3 WEEKS
     Route: 042
     Dates: start: 20100920
  4. CYTARABINE [Suspect]
     Indication: DIFFUSE LARGE B-CELL LYMPHOMA RECURRENT
     Dosage: 4GM2 EVERY 3 WEEKS
     Route: 042
     Dates: start: 20100921
  5. METOCLOPRAMIDE [Concomitant]
     Indication: NAUSEA
     Dosage: 10MG THREE TIMES PER DAY
     Route: 048
     Dates: start: 20100924, end: 20100929
  6. ONDANSETRON [Concomitant]
     Indication: NAUSEA
     Dosage: 8MG SINGLE DOSE
     Route: 042
     Dates: start: 20100927, end: 20100927
  7. GRANISETRON HCL [Concomitant]
     Indication: NAUSEA
     Dosage: 2MG PER DAY
     Route: 048
     Dates: start: 20100920, end: 20100924
  8. LEVOMEPROMAZINE [Concomitant]
     Indication: NAUSEA
     Dosage: 10MG TWICE PER DAY
     Route: 048
     Dates: start: 20100920, end: 20100923
  9. FUROSEMID [Concomitant]
     Dosage: 20MG UNKNOWN
     Route: 042
     Dates: start: 20100920, end: 20100922

REACTIONS (1)
  - BLOOD CREATININE INCREASED [None]
